FAERS Safety Report 9619225 (Version 1)
Quarter: 2013Q4

REPORT INFORMATION
  Report Type: Spontaneous
  Country: US (occurrence: US)
  Receive Date: 20131014
  Receipt Date: 20131014
  Transmission Date: 20140711
  Serious: No
  Sender: FDA-Public Use
  Company Number: US-BAYER-2013-123376

PATIENT
  Age: 80 Year
  Sex: Male

DRUGS (2)
  1. LEVITRA [Suspect]
     Dosage: 20 MG, UNK
     Route: 048
  2. SIMVASTATIN [Concomitant]

REACTIONS (2)
  - Drug ineffective [Recovered/Resolved]
  - Expired drug administered [None]
